FAERS Safety Report 23911388 (Version 1)
Quarter: 2024Q2

REPORT INFORMATION
  Report Type: Spontaneous
  Country: FR (occurrence: FR)
  Receive Date: 20240528
  Receipt Date: 20240528
  Transmission Date: 20240716
  Serious: Yes (Other)
  Sender: FDA-Public Use
  Company Number: FR-MYLANLABS-2024M1047349

PATIENT
  Age: 72 Year
  Sex: Female

DRUGS (6)
  1. ESCITALOPRAM OXALATE [Suspect]
     Active Substance: ESCITALOPRAM OXALATE
     Indication: Product used for unknown indication
     Dosage: UNK
     Route: 065
     Dates: start: 20240219
  2. EFFEXOR [Suspect]
     Active Substance: VENLAFAXINE HYDROCHLORIDE
     Indication: Product used for unknown indication
     Dosage: UNK
     Route: 065
     Dates: start: 20240201, end: 20240212
  3. QUETIAPINE [Suspect]
     Active Substance: QUETIAPINE
     Indication: Tetany
     Dosage: UNK
     Route: 065
     Dates: start: 20240124, end: 20240201
  4. QUETIAPINE [Suspect]
     Active Substance: QUETIAPINE
     Indication: Burnout syndrome
  5. IRBESARTAN [Concomitant]
     Active Substance: IRBESARTAN
     Dosage: UNK
     Route: 065
  6. AMLODIPINE [Concomitant]
     Active Substance: AMLODIPINE BESYLATE
     Indication: Product used for unknown indication
     Dosage: UNK
     Route: 065

REACTIONS (26)
  - Skin disorder [Unknown]
  - Heart rate irregular [Unknown]
  - Dyspepsia [Unknown]
  - Eye irritation [Unknown]
  - Tremor [Unknown]
  - Therapeutic product effect incomplete [Unknown]
  - Visual impairment [Unknown]
  - Dizziness [Unknown]
  - Muscle spasms [Unknown]
  - Purpura [Unknown]
  - Hypoaesthesia [Unknown]
  - Tongue disorder [Unknown]
  - Hypogeusia [Unknown]
  - Abdominal pain [Unknown]
  - Pain in extremity [Unknown]
  - Compulsive cheek biting [Unknown]
  - Cough [Unknown]
  - Hyperhidrosis [Unknown]
  - Diarrhoea [Unknown]
  - Paraesthesia [Unknown]
  - Blood pressure decreased [Unknown]
  - Dyspnoea [Unknown]
  - Dyspepsia [Unknown]
  - Decreased appetite [Unknown]
  - Insomnia [Unknown]
  - Dysuria [Unknown]
